FAERS Safety Report 19714168 (Version 1)
Quarter: 2021Q3

REPORT INFORMATION
  Report Type: Spontaneous
  Country: US (occurrence: US)
  Receive Date: 20210818
  Receipt Date: 20210818
  Transmission Date: 20211014
  Serious: No
  Sender: FDA-Public Use
  Company Number: None

PATIENT
  Age: 76 Year
  Sex: Female

DRUGS (10)
  1. AMLODIPINE 10MG TABLET [Concomitant]
  2. IMATINIB. [Suspect]
     Active Substance: IMATINIB MESYLATE
     Indication: LEUKAEMIA
     Route: 048
     Dates: start: 20210713, end: 20210816
  3. LEVOTHYROXINE 25MCG TABLET [Concomitant]
     Active Substance: LEVOTHYROXINE
  4. VITAMIN D2 1000 IU TABLET [Concomitant]
  5. SIMVASTATIN 20 MG TABLET [Concomitant]
     Active Substance: SIMVASTATIN
  6. OMEPRAZOLE 20 MG CAPSULE [Concomitant]
     Active Substance: OMEPRAZOLE
  7. GABAPENTIN 100 MG CAPSULE [Concomitant]
     Active Substance: GABAPENTIN
  8. ASPIRIN 81 MG CHEWABLE TABLET [Concomitant]
  9. CENTRUM SILVER ADULT 50+ TABLETS [Concomitant]
  10. VITAMIN B?12 1000 MCG SUBL TABLET [Concomitant]

REACTIONS (5)
  - Nausea [None]
  - Eye swelling [None]
  - Peripheral swelling [None]
  - Diarrhoea [None]
  - Blister [None]

NARRATIVE: CASE EVENT DATE: 20210816
